FAERS Safety Report 6534529-7 (Version None)
Quarter: 2010Q1

REPORT INFORMATION
  Report Type: 
  Country: None (occurrence: None)
  Receive Date: 20100112
  Receipt Date: 20100105
  Transmission Date: 20100710
  Serious: Yes (Other)
  Sender: FDA-Public Use
  Company Number: JP-B.I. PHARMACEUTICALS,INC./RIDGEFIELD-2010-DE-00058GD

PATIENT
  Age: 83 Year
  Sex: Female
  Weight: 56 kg

DRUGS (9)
  1. ISOPROTERENOL HCL [Suspect]
     Indication: TORSADE DE POINTES
     Dosage: 0.01 Y
  2. ALUPENT [Suspect]
     Indication: TORSADE DE POINTES
     Dosage: 30 MG
     Route: 048
  3. MAGNESIUM SULFATE [Concomitant]
     Indication: TORSADE DE POINTES
     Dosage: 12 G
     Route: 042
  4. LIDOCAINE [Concomitant]
     Dosage: 1.2 G
     Route: 042
  5. POTASSIUM CHLORIDE [Concomitant]
     Indication: TORSADE DE POINTES
     Route: 042
  6. CILOSTAZOL [Concomitant]
     Indication: TORSADE DE POINTES
     Dosage: 200 MG
     Route: 048
  7. SPIRONOLACTONE [Concomitant]
     Dosage: 100 MG
  8. OLMESARTAN [Concomitant]
     Dosage: 20 MG
  9. TEMOCAPRIL [Concomitant]
     Dosage: 3 MG

REACTIONS (2)
  - ATRIAL FIBRILLATION [None]
  - SINUS ARREST [None]
